FAERS Safety Report 5915001-1 (Version None)
Quarter: 2008Q4

REPORT INFORMATION
  Report Type: 
  Country: None (occurrence: None)
  Receive Date: 20081010
  Receipt Date: 20081003
  Transmission Date: 20090506
  Serious: Yes (Hospitalization, Other)
  Sender: FDA-Public Use
  Company Number: CA-ABBOTT-08P-028-0466114-00

PATIENT
  Sex: Male

DRUGS (13)
  1. HUMIRA [Suspect]
     Indication: CROHN'S DISEASE
     Route: 058
     Dates: start: 20080630, end: 20080630
  2. HUMIRA [Suspect]
     Route: 058
     Dates: start: 20080714, end: 20080714
  3. HUMIRA [Suspect]
  4. MESALAMINE [Concomitant]
     Indication: DRUG USE FOR UNKNOWN INDICATION
  5. ALLOPURINOL [Concomitant]
     Indication: DRUG USE FOR UNKNOWN INDICATION
  6. RAMIPRIL [Concomitant]
     Indication: DRUG USE FOR UNKNOWN INDICATION
  7. METOPROLOL TARTRATE [Concomitant]
     Indication: DRUG USE FOR UNKNOWN INDICATION
  8. MORNIFLUMATE [Concomitant]
     Indication: DRUG USE FOR UNKNOWN INDICATION
  9. INDOMETHACIN [Concomitant]
     Indication: DRUG USE FOR UNKNOWN INDICATION
  10. METFORMIN HCL [Concomitant]
     Indication: DRUG USE FOR UNKNOWN INDICATION
  11. CYANOCOBALAMIN [Concomitant]
     Indication: DRUG USE FOR UNKNOWN INDICATION
  12. ZINC OXIDE [Concomitant]
     Indication: SUPPLEMENTATION THERAPY
  13. ERGOCALCIFEROL [Concomitant]
     Indication: VITAMIN SUPPLEMENTATION

REACTIONS (10)
  - ABDOMINAL DISTENSION [None]
  - ABDOMINAL RIGIDITY [None]
  - BACK PAIN [None]
  - DYSURIA [None]
  - FATIGUE [None]
  - FLATULENCE [None]
  - PERIDIVERTICULAR ABSCESS [None]
  - URINARY BLADDER ABSCESS [None]
  - URINARY TRACT INFECTION [None]
  - VESICAL FISTULA [None]
